FAERS Safety Report 17258642 (Version 1)
Quarter: 2020Q1

REPORT INFORMATION
  Report Type: Spontaneous
  Country: US (occurrence: US)
  Receive Date: 20200110
  Receipt Date: 20200110
  Transmission Date: 20200409
  Serious: Yes (Other)
  Sender: FDA-Public Use
  Company Number: US-ALLERGAN-2000228US

PATIENT
  Sex: Female

DRUGS (1)
  1. ASACOL HD [Suspect]
     Active Substance: MESALAMINE
     Indication: COLITIS ULCERATIVE
     Dosage: AT 6AM, 12PM, AND 6PM

REACTIONS (3)
  - Ovarian cancer [Not Recovered/Not Resolved]
  - Haemorrhage [Unknown]
  - Inappropriate schedule of product administration [Unknown]
